FAERS Safety Report 5889079-8 (Version None)
Quarter: 2008Q3

REPORT INFORMATION
  Report Type: 
  Country: None (occurrence: None)
  Receive Date: 20080919
  Receipt Date: 20070912
  Transmission Date: 20090109
  Serious: No
  Sender: FDA-Public Use
  Company Number: US-KINGPHARMUSA00001-K200701175

PATIENT

DRUGS (10)
  1. SONATA [Suspect]
     Indication: INSOMNIA
     Dosage: 10 MG, UNK
     Dates: end: 20061101
  2. CLONAZEPAM [Suspect]
     Indication: INSOMNIA
     Dosage: 1 MG, UNK
     Dates: end: 20061101
  3. OMEPRAZOLE [Concomitant]
     Indication: GASTROOESOPHAGEAL REFLUX DISEASE
  4. TERAZOSIN HCL [Concomitant]
     Indication: BENIGN PROSTATIC HYPERPLASIA
  5. DEPAKOTE [Concomitant]
     Indication: HEADACHE
  6. KLONOPIN [Concomitant]
     Indication: DYSTONIA
     Dosage: UNK, PRN
  7. METOPROLOL TARTRATE [Concomitant]
     Indication: BLOOD PRESSURE
  8. METFORMIN HCL [Concomitant]
     Indication: BLOOD GLUCOSE ABNORMAL
  9. DESMOPRESSIN ACETATE [Concomitant]
     Indication: HYPERTONIC BLADDER
  10. HYDROCHLOROTHIAZIDE [Concomitant]

REACTIONS (2)
  - DRUG EFFECT DECREASED [None]
  - MIDDLE INSOMNIA [None]
